FAERS Safety Report 12312097 (Version 2)
Quarter: 2016Q2

REPORT INFORMATION
  Report Type: Spontaneous
  Country: US (occurrence: US)
  Receive Date: 20160427
  Receipt Date: 20160606
  Transmission Date: 20160815
  Serious: No
  Sender: FDA-Public Use
  Company Number: US-009507513-1604USA016684

PATIENT
  Age: 52 Year
  Sex: Male
  Weight: 79.37 kg

DRUGS (2)
  1. BELSOMRA [Suspect]
     Active Substance: SUVOREXANT
     Indication: MIDDLE INSOMNIA
  2. BELSOMRA [Suspect]
     Active Substance: SUVOREXANT
     Indication: INSOMNIA
     Dosage: 10 DF, QD
     Route: 048
     Dates: start: 20150610, end: 20150610

REACTIONS (6)
  - Anxiety [Unknown]
  - Blood pressure increased [Unknown]
  - Heart rate increased [Unknown]
  - Malaise [Unknown]
  - Headache [Unknown]
  - Muscle tightness [Unknown]

NARRATIVE: CASE EVENT DATE: 20150611
